FAERS Safety Report 23092804 (Version 3)
Quarter: 2023Q4

REPORT INFORMATION
  Report Type: Spontaneous
  Country: GB (occurrence: GB)
  Receive Date: 20231021
  Receipt Date: 20231218
  Transmission Date: 20240110
  Serious: Yes (Hospitalization, Other)
  Sender: FDA-Public Use
  Company Number: GB-MHRA-ADR 28246895

PATIENT
  Age: 79 Year
  Sex: Female
  Weight: 88 kg

DRUGS (106)
  1. BENDAMUSTINE HYDROCHLORIDE [Suspect]
     Active Substance: BENDAMUSTINE HYDROCHLORIDE
     Indication: Follicular lymphoma
     Dosage: UNK
     Route: 042
  2. BENDAMUSTINE HYDROCHLORIDE [Suspect]
     Active Substance: BENDAMUSTINE HYDROCHLORIDE
     Indication: Follicular lymphoma stage IV
     Dosage: 180 MILLIGRAM, ONCE A DAY
     Route: 042
     Dates: start: 20210308
  3. BENDAMUSTINE HYDROCHLORIDE [Suspect]
     Active Substance: BENDAMUSTINE HYDROCHLORIDE
     Dosage: 90 MILLIGRAM/SQ. METER, ONCE A DAY
     Route: 042
     Dates: start: 20210308
  4. BENDAMUSTINE HYDROCHLORIDE [Suspect]
     Active Substance: BENDAMUSTINE HYDROCHLORIDE
     Dosage: 180 MILLIGRAM
     Route: 042
     Dates: start: 20210706
  5. ATEZOLIZUMAB [Suspect]
     Active Substance: ATEZOLIZUMAB
     Indication: Non-small cell lung cancer
     Dosage: UNK
     Route: 042
     Dates: start: 20200518
  6. ATEZOLIZUMAB [Suspect]
     Active Substance: ATEZOLIZUMAB
     Dosage: 3600 MILLIGRAM
     Route: 042
     Dates: start: 20200210
  7. ATEZOLIZUMAB [Suspect]
     Active Substance: ATEZOLIZUMAB
     Dosage: 1200 MG, EVERY 2 WEEK
     Route: 042
     Dates: start: 20200210
  8. ATEZOLIZUMAB [Suspect]
     Active Substance: ATEZOLIZUMAB
     Dosage: 1200 MILLIGRAM
     Route: 042
     Dates: start: 20200210
  9. ATEZOLIZUMAB [Suspect]
     Active Substance: ATEZOLIZUMAB
     Dosage: 1200 MILLIGRAM
     Route: 042
     Dates: start: 20200210
  10. ATEZOLIZUMAB [Suspect]
     Active Substance: ATEZOLIZUMAB
     Dosage: 2400 MILLIGRAM
     Route: 042
     Dates: start: 20200210
  11. ATEZOLIZUMAB [Suspect]
     Active Substance: ATEZOLIZUMAB
     Dosage: UNK
     Route: 042
     Dates: start: 20200606
  12. ATEZOLIZUMAB [Suspect]
     Active Substance: ATEZOLIZUMAB
     Dosage: UNK
     Route: 042
     Dates: start: 20200625
  13. BEVACIZUMAB [Suspect]
     Active Substance: BEVACIZUMAB
     Indication: Non-small cell lung cancer
     Dosage: 1200 MILLIGRAM, EVERY 3 WEEKS (CUMULATIVE DOSE TO FIRST REACTION: 228.57143 MG)
     Route: 042
     Dates: start: 20200210
  14. BEVACIZUMAB [Suspect]
     Active Substance: BEVACIZUMAB
     Dosage: 3600 MILLIGRAM, EVERY WEEK
     Route: 042
     Dates: start: 20200210
  15. BEVACIZUMAB [Suspect]
     Active Substance: BEVACIZUMAB
     Dosage: 1200 MILLIGRAM
     Route: 042
     Dates: start: 20200210
  16. BEVACIZUMAB [Suspect]
     Active Substance: BEVACIZUMAB
     Dosage: 1100 MILLIGRAM
     Route: 042
     Dates: start: 20200210
  17. BEVACIZUMAB [Suspect]
     Active Substance: BEVACIZUMAB
     Dosage: 1200 MILLIGRAM, EVERY WEEK
     Route: 042
     Dates: start: 20200210
  18. BEVACIZUMAB [Suspect]
     Active Substance: BEVACIZUMAB
     Dosage: 2400 MILLIGRAM, EVERY WEEK
     Route: 042
     Dates: start: 20200210
  19. BEVACIZUMAB [Suspect]
     Active Substance: BEVACIZUMAB
     Dosage: 1200 MILLIGRAM
     Route: 042
     Dates: start: 20200210
  20. CARBOPLATIN [Suspect]
     Active Substance: CARBOPLATIN
     Indication: Transitional cell carcinoma
     Dosage: UNK
     Route: 065
  21. CARBOPLATIN [Suspect]
     Active Substance: CARBOPLATIN
     Dosage: 630 MILLIGRAM
     Route: 042
     Dates: start: 20200210
  22. DIHYDROCODEINE BITARTRATE [Suspect]
     Active Substance: DIHYDROCODEINE BITARTRATE
     Indication: Visual impairment
     Dosage: 1 DOSAGE FORM, ONCE A DAY
     Route: 065
  23. EPCORITAMAB [Suspect]
     Active Substance: EPCORITAMAB
     Indication: Follicular lymphoma stage IV
     Dosage: 0.16 MILLIGRAM
     Route: 058
     Dates: start: 20210308, end: 20210308
  24. EPCORITAMAB [Suspect]
     Active Substance: EPCORITAMAB
     Dosage: 0.16 MILLIGRAM, ONCE A DAY
     Route: 058
     Dates: start: 20210308, end: 20210308
  25. EPCORITAMAB [Suspect]
     Active Substance: EPCORITAMAB
     Dosage: 0.8 MILLIGRAM, ONCE A DAY
     Route: 065
     Dates: start: 20210315
  26. EPCORITAMAB [Suspect]
     Active Substance: EPCORITAMAB
     Dosage: 24 MILLIGRAM, EVERY WEEK
     Route: 058
     Dates: start: 20210322, end: 20210527
  27. EPCORITAMAB [Suspect]
     Active Substance: EPCORITAMAB
     Dosage: 24 MILLIGRAM
     Route: 065
     Dates: start: 20210322
  28. EPCORITAMAB [Suspect]
     Active Substance: EPCORITAMAB
     Dosage: 0.8 MILLIGRAM, ONCE A DAY
     Route: 058
     Dates: start: 20210315, end: 20210315
  29. EPCORITAMAB [Suspect]
     Active Substance: EPCORITAMAB
     Dosage: 24 MILLIGRAM, EVERY WEEK
     Route: 058
     Dates: start: 20210322, end: 20210327
  30. EPCORITAMAB [Suspect]
     Active Substance: EPCORITAMAB
     Dosage: 24 MILLIGRAM, EVERY WEEK
     Route: 065
     Dates: start: 20210322, end: 20210527
  31. EPCORITAMAB [Suspect]
     Active Substance: EPCORITAMAB
     Dosage: 48 MILLIGRAM, EVERY WEEK
     Route: 065
     Dates: start: 20210607
  32. EPCORITAMAB [Suspect]
     Active Substance: EPCORITAMAB
     Dosage: 24 MILLIGRAM
     Route: 058
     Dates: start: 20210607
  33. EPCORITAMAB [Suspect]
     Active Substance: EPCORITAMAB
     Dosage: UNK
     Route: 065
  34. EPCORITAMAB [Suspect]
     Active Substance: EPCORITAMAB
     Dosage: 24 MILLIGRAM
     Route: 058
     Dates: start: 20210607
  35. EPCORITAMAB [Suspect]
     Active Substance: EPCORITAMAB
     Dosage: 48 MILLIGRAM, EVERY WEEK
     Route: 058
     Dates: start: 20210607
  36. PACLITAXEL [Suspect]
     Active Substance: PACLITAXEL
     Indication: Transitional cell carcinoma
     Dosage: UNK
     Route: 065
  37. PACLITAXEL [Suspect]
     Active Substance: PACLITAXEL
     Dosage: 378 MILLIGRAM
     Route: 065
     Dates: start: 20200427
  38. RITUXIMAB [Suspect]
     Active Substance: RITUXIMAB
     Indication: Follicular lymphoma stage IV
     Dosage: 375 MILLIGRAM/SQ. METER
     Route: 042
     Dates: start: 20210308
  39. RITUXIMAB [Suspect]
     Active Substance: RITUXIMAB
     Dosage: 750 MILLIGRAM
     Route: 042
     Dates: start: 20210308
  40. RITUXIMAB [Suspect]
     Active Substance: RITUXIMAB
     Dosage: 3000 MILLIGRAM
     Route: 042
     Dates: start: 20210308
  41. RITUXIMAB [Suspect]
     Active Substance: RITUXIMAB
     Dosage: 750 MILLIGRAM
     Route: 042
     Dates: start: 20210308
  42. RITUXIMAB [Suspect]
     Active Substance: RITUXIMAB
     Dosage: 3000 MILLIGRAM, EVERY WEEK
     Route: 042
     Dates: start: 20210705
  43. RITUXIMAB [Suspect]
     Active Substance: RITUXIMAB
     Dosage: 750 MILLIGRAM
     Route: 065
     Dates: start: 20210705
  44. RITUXIMAB [Suspect]
     Active Substance: RITUXIMAB
     Dosage: 3000 MILLIGRAM, EVERY WEEK
     Route: 042
     Dates: start: 20210705
  45. RITUXIMAB [Suspect]
     Active Substance: RITUXIMAB
     Dosage: 750 MILLIGRAM
     Route: 042
     Dates: start: 20210705
  46. ACYCLOVIR [Concomitant]
     Active Substance: ACYCLOVIR
     Indication: Product used for unknown indication
     Dosage: 0.33 MILLIGRAM, DAILY
     Route: 065
     Dates: start: 20200402, end: 20200404
  47. AMOXICILLIN [Concomitant]
     Active Substance: AMOXICILLIN
     Indication: Product used for unknown indication
     Dosage: UNK
     Route: 065
  48. AMOXICILLIN\CLAVULANATE POTASSIUM [Concomitant]
     Active Substance: AMOXICILLIN\CLAVULANATE POTASSIUM
     Indication: Product used for unknown indication
     Dosage: UNK
     Route: 065
  49. HYDROCORTISONE [Concomitant]
     Active Substance: HYDROCORTISONE
     Indication: Product used for unknown indication
     Dosage: UNK
     Route: 065
     Dates: start: 20210715
  50. HYDROCORTISONE [Concomitant]
     Active Substance: HYDROCORTISONE
     Dosage: UNK
     Route: 065
     Dates: start: 20210721, end: 20210721
  51. MICONAZOLE NITRATE [Concomitant]
     Active Substance: MICONAZOLE NITRATE
     Indication: Product used for unknown indication
     Dosage: UNK
     Route: 065
     Dates: start: 20210715
  52. BUTYLSCOPOLAMINE BROMIDE [Concomitant]
     Active Substance: BUTYLSCOPOLAMINE BROMIDE
     Indication: Product used for unknown indication
     Dosage: UNK
     Route: 065
  53. CALCIUM [Concomitant]
     Active Substance: CALCIUM
     Indication: Product used for unknown indication
     Dosage: UNK
     Route: 065
     Dates: start: 20210504
  54. CEFUROXIME [Concomitant]
     Active Substance: CEFUROXIME
     Indication: Product used for unknown indication
     Dosage: UNK
     Route: 065
     Dates: start: 20210509
  55. CHLORHEXIDINE [Concomitant]
     Active Substance: CHLORHEXIDINE\CHLORHEXIDINE GLUCONATE
     Indication: Product used for unknown indication
     Dosage: UNK
     Route: 065
  56. CIPROFLOXACIN [Concomitant]
     Active Substance: CIPROFLOXACIN
     Indication: Product used for unknown indication
     Dosage: UNK
     Route: 065
  57. CLAVULANATE POTASSIUM [Concomitant]
     Active Substance: CLAVULANATE POTASSIUM
     Indication: Product used for unknown indication
     Dosage: UNK
     Route: 065
  58. CLAVULANIC ACID [Concomitant]
     Active Substance: CLAVULANIC ACID
     Indication: Prophylaxis
     Dosage: UNK
     Route: 065
     Dates: start: 20210509
  59. CLAVULANIC ACID [Concomitant]
     Active Substance: CLAVULANIC ACID
     Dosage: UNK
     Route: 065
     Dates: start: 20210714, end: 20210715
  60. CLEMASTINE FUMARATE [Concomitant]
     Active Substance: CLEMASTINE FUMARATE
     Indication: Product used for unknown indication
     Dosage: UNK
     Route: 065
  61. CHOLECALCIFEROL [Concomitant]
     Active Substance: CHOLECALCIFEROL
     Indication: Product used for unknown indication
     Dosage: UNK
     Route: 065
  62. CHOLECALCIFEROL [Concomitant]
     Active Substance: CHOLECALCIFEROL
     Dosage: UNK
     Route: 065
     Dates: start: 20210504
  63. DAPSONE [Concomitant]
     Active Substance: DAPSONE
     Indication: Product used for unknown indication
     Dosage: UNK
     Route: 065
     Dates: start: 20210607, end: 20220207
  64. DEXAMETHASONE [Concomitant]
     Active Substance: DEXAMETHASONE
     Indication: Product used for unknown indication
     Dosage: UNK
     Route: 065
  65. FLUTICASONE FUROATE [Concomitant]
     Active Substance: FLUTICASONE FUROATE
     Indication: Product used for unknown indication
     Dosage: UNK
     Route: 065
  66. FUROSEMIDE [Concomitant]
     Active Substance: FUROSEMIDE
     Indication: Product used for unknown indication
     Dosage: UNK
     Route: 065
     Dates: start: 20210308
  67. Gelclair [Concomitant]
     Indication: Product used for unknown indication
     Dosage: UNK
     Route: 065
  68. BUTYLSCOPOLAMINE BROMIDE [Concomitant]
     Active Substance: BUTYLSCOPOLAMINE BROMIDE
     Indication: Product used for unknown indication
     Dosage: UNK
     Route: 065
  69. IMODIUM [Concomitant]
     Active Substance: LOPERAMIDE HYDROCHLORIDE
     Indication: Product used for unknown indication
     Dosage: UNK
     Route: 065
     Dates: start: 20210518
  70. POTASSIUM CHLORIDE [Concomitant]
     Active Substance: POTASSIUM CHLORIDE
     Indication: Product used for unknown indication
     Dosage: UNK
     Route: 065
     Dates: start: 20210308
  71. POTASSIUM CHLORIDE [Concomitant]
     Active Substance: POTASSIUM CHLORIDE
     Dosage: UNK
     Route: 065
     Dates: start: 20210712
  72. LANSOPRAZOLE [Concomitant]
     Active Substance: LANSOPRAZOLE
     Indication: Product used for unknown indication
     Dosage: UNK
     Route: 065
  73. LOPERAMIDE [Concomitant]
     Active Substance: LOPERAMIDE
     Indication: Product used for unknown indication
     Dosage: UNK
     Route: 065
  74. POLYETHYLENE GLYCOL 3350 [Concomitant]
     Active Substance: POLYETHYLENE GLYCOL 3350
     Indication: Product used for unknown indication
     Dosage: UNK
     Route: 065
     Dates: start: 20210712
  75. METHYLPREDNISOLONE [Concomitant]
     Active Substance: METHYLPREDNISOLONE
     Indication: Prophylaxis
     Dosage: 80 MILLIGRAM
     Route: 042
     Dates: start: 20210308, end: 20210308
  76. METHYLPREDNISOLONE [Concomitant]
     Active Substance: METHYLPREDNISOLONE
     Dosage: UNK
     Route: 065
     Dates: start: 20210308, end: 20210406
  77. METHYLPREDNISOLONE [Concomitant]
     Active Substance: METHYLPREDNISOLONE
     Dosage: 80 MILLIGRAM
     Route: 042
     Dates: start: 20210406, end: 20210406
  78. METHYLPREDNISOLONE [Concomitant]
     Active Substance: METHYLPREDNISOLONE
     Dosage: UNK
     Route: 065
     Dates: start: 20210406, end: 20210406
  79. METHYLPREDNISOLONE SODIUM SUCCINATE [Concomitant]
     Active Substance: METHYLPREDNISOLONE SODIUM SUCCINATE
     Indication: Product used for unknown indication
     Dosage: UNK
     Route: 065
     Dates: start: 20210308, end: 20210406
  80. METOCLOPRAMIDE [Concomitant]
     Active Substance: METOCLOPRAMIDE
     Indication: Product used for unknown indication
     Dosage: UNK
     Route: 065
     Dates: start: 20210509, end: 20210623
  81. MICONAZOLE [Concomitant]
     Active Substance: MICONAZOLE
     Indication: Product used for unknown indication
     Dosage: UNK
     Route: 065
     Dates: start: 20210715, end: 20211004
  82. MORPHINE SULFATE [Concomitant]
     Active Substance: MORPHINE SULFATE
     Indication: Product used for unknown indication
     Dosage: UNK
     Route: 065
  83. NITROFURANTOIN [Concomitant]
     Active Substance: NITROFURANTOIN
     Indication: Product used for unknown indication
     Dosage: UNK
     Route: 065
  84. OMEPRAZOLE [Concomitant]
     Active Substance: OMEPRAZOLE
     Indication: Product used for unknown indication
     Dosage: UNK
     Route: 065
  85. ONDANSETRON [Concomitant]
     Active Substance: ONDANSETRON
     Indication: Product used for unknown indication
     Dosage: UNK
     Route: 065
  86. MORPHINE SULFATE [Concomitant]
     Active Substance: MORPHINE SULFATE
     Indication: Product used for unknown indication
     Dosage: UNK
     Route: 065
  87. OXETACAINE [Concomitant]
     Active Substance: OXETHAZAINE
     Indication: Product used for unknown indication
     Dosage: UNK
     Route: 065
  88. PANTOPRAZOLE [Concomitant]
     Active Substance: PANTOPRAZOLE
     Indication: Product used for unknown indication
     Dosage: UNK
     Route: 065
  89. ACETAMINOPHEN [Concomitant]
     Active Substance: ACETAMINOPHEN
     Indication: Product used for unknown indication
     Dosage: UNK
     Route: 065
     Dates: start: 20210308
  90. PIPERACILLIN AND TAZOBACTAM [Concomitant]
     Active Substance: PIPERACILLIN SODIUM\TAZOBACTAM SODIUM
     Indication: Prophylaxis
     Dosage: UNK
     Route: 065
     Dates: start: 20210713, end: 20210714
  91. PIPERACILLIN SODIUM [Concomitant]
     Active Substance: PIPERACILLIN SODIUM
     Indication: Prophylaxis
     Dosage: UNK
     Route: 065
     Dates: start: 20210713, end: 20210714
  92. AMDINOCILLIN PIVOXIL [Concomitant]
     Active Substance: AMDINOCILLIN PIVOXIL
     Indication: Product used for unknown indication
     Dosage: UNK
     Route: 065
  93. PRAMIPEXOLE [Concomitant]
     Active Substance: PRAMIPEXOLE
     Indication: Product used for unknown indication
     Dosage: UNK
     Route: 065
  94. PREDNISOLONE [Concomitant]
     Active Substance: PREDNISOLONE
     Indication: Product used for unknown indication
     Dosage: UNK
     Route: 065
     Dates: start: 20210309, end: 20210705
  95. PREDNISOLONE [Concomitant]
     Active Substance: PREDNISOLONE
     Dosage: UNK
     Route: 065
     Dates: start: 20210705, end: 20210705
  96. FLUTICASONE FUROATE\VILANTEROL TRIFENATATE [Concomitant]
     Active Substance: FLUTICASONE FUROATE\VILANTEROL TRIFENATATE
     Indication: Product used for unknown indication
     Dosage: UNK
     Route: 065
     Dates: start: 20210708, end: 20211202
  97. ALBUTEROL [Concomitant]
     Active Substance: ALBUTEROL
     Indication: Product used for unknown indication
     Dosage: UNK
     Route: 065
  98. ALBUTEROL [Concomitant]
     Active Substance: ALBUTEROL
     Dosage: UNK
     Route: 065
     Dates: start: 20210708
  99. PRAMIPEXOLE [Concomitant]
     Active Substance: PRAMIPEXOLE
     Indication: Product used for unknown indication
     Dosage: UNK
     Route: 065
     Dates: start: 20120823
  100. SODIUM BICARBONATE [Concomitant]
     Active Substance: SODIUM BICARBONATE
     Indication: Product used for unknown indication
     Dosage: UNK
     Route: 065
     Dates: start: 20210712
  101. SODIUM CHLORIDE [Concomitant]
     Active Substance: SODIUM CHLORIDE
     Indication: Product used for unknown indication
     Dosage: UNK
     Route: 065
     Dates: start: 20210712
  102. SOLU-MEDROL [Concomitant]
     Active Substance: METHYLPREDNISOLONE SODIUM SUCCINATE
     Indication: Product used for unknown indication
     Dosage: UNK
     Route: 065
     Dates: start: 20210308, end: 20210406
  103. TAZOBACTAM SODIUM [Concomitant]
     Active Substance: TAZOBACTAM SODIUM
     Indication: Prophylaxis
     Dosage: UNK
     Route: 065
     Dates: start: 20210308
  104. TAZOBACTAM SODIUM [Concomitant]
     Active Substance: TAZOBACTAM SODIUM
     Dosage: UNK
     Route: 065
     Dates: start: 20210713, end: 20210714
  105. VALGANCICLOVIR [Concomitant]
     Active Substance: VALGANCICLOVIR
     Indication: Product used for unknown indication
     Dosage: UNK
     Route: 065
  106. VILANTEROL TRIFENATATE [Concomitant]
     Active Substance: VILANTEROL TRIFENATATE
     Indication: Product used for unknown indication
     Dosage: UNK
     Route: 065
     Dates: start: 20210708

REACTIONS (8)
  - Cytomegalovirus infection [Recovered/Resolved]
  - Sepsis [Unknown]
  - Hydronephrosis [Unknown]
  - Abdominal pain [Recovered/Resolved]
  - Constipation [Unknown]
  - Blood creatinine increased [Unknown]
  - Diarrhoea [Recovered/Resolved]
  - Product use issue [Unknown]

NARRATIVE: CASE EVENT DATE: 20200214
